FAERS Safety Report 8786158 (Version 11)
Quarter: 2013Q3

REPORT INFORMATION
  Report Type: Report from Study
  Country: IT (occurrence: IT)
  Receive Date: 20120914
  Receipt Date: 20130711
  Transmission Date: 20140515
  Serious: Yes (Hospitalization, Other)
  Sender: FDA-Public Use
  Company Number: IT-ROCHE-1124486

PATIENT
  Age: 74 Year
  Sex: Female
  Weight: 65 kg

DRUGS (4)
  1. TOCILIZUMAB [Suspect]
     Indication: RHEUMATOID ARTHRITIS
     Route: 065
  2. ADALIMUMAB [Suspect]
     Indication: RHEUMATOID ARTHRITIS
     Route: 065
  3. ETANERCEPT [Suspect]
     Indication: RHEUMATOID ARTHRITIS
     Route: 058
     Dates: start: 20120620
  4. METHYLPREDNISOLONE [Concomitant]
     Route: 065
     Dates: start: 2000

REACTIONS (1)
  - Rheumatoid arthritis [Recovered/Resolved]
